FAERS Safety Report 5728682-2 (Version None)
Quarter: 2008Q2

REPORT INFORMATION
  Report Type: 
  Country: None (occurrence: None)
  Receive Date: 20080506
  Receipt Date: 20080425
  Transmission Date: 20081010
  Serious: Yes (Death, Hospitalization)
  Sender: FDA-Public Use
  Company Number: FR-GENENTECH-260329

PATIENT
  Sex: Female

DRUGS (4)
  1. RITUXIMAB [Suspect]
     Indication: MANTLE CELL LYMPHOMA
     Dosage: 720 MG, UNK
     Dates: start: 20080416, end: 20080416
  2. DOXORUBICIN HCL [Suspect]
     Indication: MANTLE CELL LYMPHOMA
     Dosage: 36 MG, UNK
     Dates: start: 20080416, end: 20080416
  3. CYCLOPHOSPHAMIDE [Suspect]
     Indication: MANTLE CELL LYMPHOMA
     Dosage: 1430 MG, UNK
     Dates: start: 20080416, end: 20080416
  4. VINCRISTINE [Suspect]
     Indication: MANTLE CELL LYMPHOMA
     Dosage: 8 MG, UNK
     Dates: start: 20080416, end: 20080416

REACTIONS (1)
  - SEPTIC SHOCK [None]
